FAERS Safety Report 22203029 (Version 11)
Quarter: 2025Q3

REPORT INFORMATION
  Report Type: Spontaneous
  Country: US (occurrence: US)
  Receive Date: 20230412
  Receipt Date: 20250813
  Transmission Date: 20251021
  Serious: No
  Sender: PFIZER
  Company Number: US-PFIZER INC-PV202300063761

PATIENT
  Age: 66 Year
  Sex: Female
  Weight: 85.261 kg

DRUGS (16)
  1. IBRANCE [Suspect]
     Active Substance: PALBOCICLIB
     Indication: Hormone receptor positive HER2 negative breast cancer
     Route: 048
     Dates: start: 202006
  2. IBRANCE [Suspect]
     Active Substance: PALBOCICLIB
     Dates: start: 20200711
  3. IBRANCE [Suspect]
     Active Substance: PALBOCICLIB
     Route: 048
     Dates: start: 20201011, end: 20201031
  4. IBRANCE [Suspect]
     Active Substance: PALBOCICLIB
     Dates: start: 20201108
  5. IBRANCE [Suspect]
     Active Substance: PALBOCICLIB
     Dates: start: 2021
  6. IBRANCE [Suspect]
     Active Substance: PALBOCICLIB
     Dates: start: 2022
  7. IBRANCE [Suspect]
     Active Substance: PALBOCICLIB
     Route: 048
     Dates: start: 2024
  8. IBRANCE [Suspect]
     Active Substance: PALBOCICLIB
     Dates: end: 202412
  9. IBRANCE [Suspect]
     Active Substance: PALBOCICLIB
     Dates: start: 202507
  10. FEMARA [Suspect]
     Active Substance: LETROZOLE
     Indication: Hormone receptor positive breast cancer
     Dates: start: 202006
  11. FEMARA [Suspect]
     Active Substance: LETROZOLE
     Indication: Metastases to lung
     Dates: start: 20200711
  12. FEMARA [Suspect]
     Active Substance: LETROZOLE
     Dates: start: 20201108
  13. FEMARA [Suspect]
     Active Substance: LETROZOLE
     Dates: start: 2021
  14. FEMARA [Suspect]
     Active Substance: LETROZOLE
     Dates: start: 2022
  15. FEMARA [Suspect]
     Active Substance: LETROZOLE
     Dates: start: 2024
  16. FEMARA [Suspect]
     Active Substance: LETROZOLE

REACTIONS (15)
  - Myalgia [Unknown]
  - Vitamin D decreased [Unknown]
  - Pruritus [Recovered/Resolved]
  - Ear pruritus [Recovered/Resolved]
  - Blister [Unknown]
  - Rash [Recovered/Resolved]
  - Hot flush [Unknown]
  - Abdominal hernia [Not Recovered/Not Resolved]
  - Pain in extremity [Recovered/Resolved]
  - Swelling [Unknown]
  - Osteopenia [Unknown]
  - Acne [Unknown]
  - COVID-19 [Unknown]
  - Alopecia [Unknown]
  - Urticaria [Unknown]

NARRATIVE: CASE EVENT DATE: 20200722
